FAERS Safety Report 7228921-5 (Version None)
Quarter: 2011Q1

REPORT INFORMATION
  Report Type: 
  Country: None (occurrence: None)
  Receive Date: 20110117
  Receipt Date: 20110107
  Transmission Date: 20110831
  Serious: Yes (Hospitalization)
  Sender: FDA-Public Use
  Company Number: FR-JNJFOC-20110102448

PATIENT
  Sex: Female

DRUGS (11)
  1. HEPARIN [Concomitant]
  2. CLOPIDOGREL [Concomitant]
  3. SPIRONOLACTONE [Concomitant]
  4. LYSINE ACETYLSALICYLATE [Concomitant]
     Route: 042
  5. ALDACTAZIDE [Concomitant]
  6. REOPRO [Suspect]
     Indication: ILL-DEFINED DISORDER
  7. PRAVASTATIN [Concomitant]
  8. ISOSORBIDE DINITRATE [Concomitant]
  9. PRASUGREL [Suspect]
     Indication: ILL-DEFINED DISORDER
  10. ADENOSINE [Concomitant]
  11. REOPRO [Suspect]

REACTIONS (3)
  - PYREXIA [None]
  - THROMBOCYTOPENIA [None]
  - RASH MACULAR [None]
